FAERS Safety Report 5269062-6 (Version None)
Quarter: 2007Q1

REPORT INFORMATION
  Report Type: 
  Country: None (occurrence: None)
  Receive Date: 20070314
  Receipt Date: 20070305
  Transmission Date: 20070707
  Serious: Yes (Other)
  Sender: FDA-Public Use
  Company Number: 237637

PATIENT
  Age: 79 Year
  Sex: Female

DRUGS (11)
  1. LUCENTIS [Suspect]
     Dates: start: 20061110, end: 20070201
  2. SALSALATE (SALSALATE) [Concomitant]
  3. PEPCID [Concomitant]
  4. ATACAND [Concomitant]
  5. DRUG UNKNOWN (GENERIC COMPONENTS) [Concomitant]
  6. ASPIRIN [Concomitant]
  7. ATENOLOL [Concomitant]
  8. FUROSEMIDE [Concomitant]
  9. CELEBREX [Concomitant]
  10. METAMUCIL (PSYLLIUM HUSK) [Concomitant]
  11. FERROUS GLUCONATE (FERROUS GLUCONATE) [Concomitant]

REACTIONS (3)
  - BALANCE DISORDER [None]
  - MONOPLEGIA [None]
  - SPEECH DISORDER [None]
